FAERS Safety Report 8966506 (Version 1)
Quarter: 2012Q4

REPORT INFORMATION
  Report Type: 
  Country: US (occurrence: US)
  Receive Date: 20121217
  Receipt Date: 20121217
  Transmission Date: 20130627
  Serious: Yes (Other)
  Sender: FDA-Public Use
  Company Number: US-BAYER-2012-130806

PATIENT
  Age: 80 Year
  Sex: Male
  Weight: 79.82 kg

DRUGS (7)
  1. ASPIRIN [Suspect]
     Indication: CHEST PAIN
     Dosage: 1 dose, ONCE
     Route: 048
     Dates: start: 201209, end: 201209
  2. ALBUTEROL [Concomitant]
  3. SYMBICORT [Concomitant]
  4. SPIRIVA [Concomitant]
  5. PREDNISONE [Concomitant]
  6. GUAIFENESIN [Concomitant]
  7. ADULT FULL STRENGHTCOATED [Concomitant]

REACTIONS (4)
  - Angina pectoris [None]
  - Expired drug administered [None]
  - Off label use [None]
  - Incorrect dose administered [None]
